FAERS Safety Report 19576023 (Version 1)
Quarter: 2021Q3

REPORT INFORMATION
  Report Type: Spontaneous
  Country: US (occurrence: US)
  Receive Date: 20210718
  Receipt Date: 20210718
  Transmission Date: 20211014
  Serious: Yes (Life-Threatening)
  Sender: FDA-Public Use
  Company Number: None

PATIENT
  Age: 41 Year
  Sex: Female
  Weight: 66.15 kg

DRUGS (8)
  1. CLARITIN [Concomitant]
     Active Substance: LORATADINE
  2. VITAMIN D [Concomitant]
     Active Substance: VITAMIN D NOS
  3. SPIRONOLACTONE. [Concomitant]
     Active Substance: SPIRONOLACTONE
  4. MULTI VITAMIN GUMMIES [Concomitant]
  5. SCOPOLAMINE [Suspect]
     Active Substance: SCOPOLAMINE
     Indication: MOTION SICKNESS
     Dosage: ?          QUANTITY:2 PATCH(ES);OTHER FREQUENCY:1 EVERY 3 DAYS;?
     Route: 062
     Dates: start: 20210701, end: 20210705
  6. CITALOPRAM [Concomitant]
     Active Substance: CITALOPRAM HYDROBROMIDE
  7. DIGESTIVE ADVANTAGE PROBIOTIC [Concomitant]
  8. WOMEN^S VITAFUSION [Concomitant]

REACTIONS (11)
  - Vertigo [None]
  - Panic attack [None]
  - General physical health deterioration [None]
  - Mental impairment [None]
  - Nausea [None]
  - Dizziness [None]
  - Suicidal ideation [None]
  - Adverse drug reaction [None]
  - Withdrawal syndrome [None]
  - Dehydration [None]
  - Impaired work ability [None]

NARRATIVE: CASE EVENT DATE: 20210706
